FAERS Safety Report 23951665 (Version 1)
Quarter: 2024Q2

REPORT INFORMATION
  Report Type: Spontaneous
  Country: FR (occurrence: FR)
  Receive Date: 20240607
  Receipt Date: 20240607
  Transmission Date: 20240716
  Serious: Yes (Other)
  Sender: FDA-Public Use
  Company Number: None

PATIENT
  Age: 69 Year
  Sex: Male
  Weight: 85 kg

DRUGS (4)
  1. PROPOFOL [Suspect]
     Active Substance: PROPOFOL
     Indication: Oesophagogastroscopy
     Route: 042
     Dates: start: 20240114, end: 20240114
  2. ETOMIDATE [Suspect]
     Active Substance: ETOMIDATE
     Indication: Oesophagogastroscopy
     Route: 042
     Dates: start: 20240114, end: 20240114
  3. SUCCINYLCHOLINE [Suspect]
     Active Substance: SUCCINYLCHOLINE
     Indication: Oesophagogastroscopy
     Route: 042
     Dates: start: 20240114, end: 20240114
  4. SUFENTANIL [Concomitant]
     Active Substance: SUFENTANIL
     Indication: Product used for unknown indication

REACTIONS (1)
  - Anaphylactic reaction [Recovered/Resolved]

NARRATIVE: CASE EVENT DATE: 20240114
